FAERS Safety Report 10561119 (Version 2)
Quarter: 2014Q4

REPORT INFORMATION
  Report Type: Spontaneous
  Country: US (occurrence: US)
  Receive Date: 20141103
  Receipt Date: 20141114
  Transmission Date: 20150529
  Serious: No
  Sender: FDA-Public Use
  Company Number: US-GLAXOSMITHKLINE-US2014GSK015595

PATIENT
  Age: 64 Year
  Sex: Male

DRUGS (8)
  1. QUETIAPINE [Concomitant]
     Active Substance: QUETIAPINE
  2. SIMVASTATIN. [Concomitant]
     Active Substance: SIMVASTATIN
  3. ALPRAZOLAM ER [Concomitant]
     Active Substance: ALPRAZOLAM
  4. ALPRAZOLAM. [Concomitant]
     Active Substance: ALPRAZOLAM
  5. PROMACTA [Suspect]
     Active Substance: ELTROMBOPAG OLAMINE
     Indication: IMMUNE THROMBOCYTOPENIC PURPURA
     Dosage: 50 MG, QD
     Route: 048
     Dates: start: 20140926
  6. CALCIUM HYDROXIDE [Interacting]
     Active Substance: CALCIUM HYDROXIDE
  7. AMLODIPINE + BENAZEPRIL [Concomitant]
     Active Substance: AMLODIPINE BESYLATE\BENAZEPRIL HYDROCHLORIDE
  8. MULTIVITAMIN [Interacting]
     Active Substance: VITAMINS

REACTIONS (5)
  - Food interaction [Unknown]
  - Drug ineffective [Unknown]
  - Drug interaction [Unknown]
  - Hepatic enzyme decreased [Unknown]
  - Insomnia [Unknown]

NARRATIVE: CASE EVENT DATE: 20140926
